FAERS Safety Report 10198260 (Version 3)
Quarter: 2014Q4

REPORT INFORMATION
  Report Type: Report from Study
  Country: US (occurrence: US)
  Receive Date: 20140527
  Receipt Date: 20141119
  Transmission Date: 20150528
  Serious: Yes (Other)
  Sender: FDA-Public Use
  Company Number: US-SA-2014SA048041

PATIENT
  Age: 54 Year
  Sex: Female

DRUGS (1)
  1. AUBAGIO [Suspect]
     Active Substance: TERIFLUNOMIDE
     Indication: MULTIPLE SCLEROSIS
     Route: 048
     Dates: start: 20140327

REACTIONS (13)
  - Hemiparesis [Not Recovered/Not Resolved]
  - Enterovirus infection [Recovered/Resolved]
  - Wheezing [Recovering/Resolving]
  - Asthma [Recovering/Resolving]
  - Stomatitis [Not Recovered/Not Resolved]
  - Anaemia [Recovered/Resolved]
  - Hypersomnia [Unknown]
  - Respiratory tract infection [Recovering/Resolving]
  - Cough [Recovering/Resolving]
  - Fatigue [Unknown]
  - Amnesia [Not Recovered/Not Resolved]
  - Condition aggravated [Unknown]
  - Nuclear magnetic resonance imaging abnormal [Recovered/Resolved]

NARRATIVE: CASE EVENT DATE: 2014
